FAERS Safety Report 6235715-6 (Version None)
Quarter: 2009Q2

REPORT INFORMATION
  Report Type: 
  Country: None (occurrence: None)
  Receive Date: 20090616
  Receipt Date: 20090604
  Transmission Date: 20091009
  Serious: Yes (Other)
  Sender: FDA-Public Use
  Company Number: A-US2004-08436

PATIENT
  Age: 28 Year
  Sex: Female
  Weight: 83.6 kg

DRUGS (12)
  1. TRACLEER [Suspect]
     Indication: PULMONARY ARTERIAL HYPERTENSION
     Dosage: 125 MG, BID, ORAL
     Route: 048
     Dates: start: 20040529
  2. PREDNISONE TAB [Concomitant]
  3. CELEXA [Concomitant]
  4. XANAX [Concomitant]
  5. PAXIL [Concomitant]
  6. NEXIUM (ESOMEPRAZOLE SODIUM) [Concomitant]
  7. ALDACTONE [Concomitant]
  8. LASIX [Concomitant]
  9. CELLCEPT [Concomitant]
  10. OXYGEN (OXYGEN) [Concomitant]
  11. POTASSIUM CHLORIDE [Concomitant]
  12. COUMADIN [Concomitant]

REACTIONS (3)
  - ABORTION SPONTANEOUS [None]
  - DRUG EXPOSURE DURING PREGNANCY [None]
  - PREGNANCY [None]
